FAERS Safety Report 7852663-6 (Version None)
Quarter: 2011Q4

REPORT INFORMATION
  Report Type: 
  Country: None (occurrence: None)
  Receive Date: 20111026
  Receipt Date: 20111024
  Transmission Date: 20120403
  Serious: Yes (Other)
  Sender: FDA-Public Use
  Company Number: DE-GLAXOSMITHKLINE-D0073123A

PATIENT
  Age: 15 Year
  Sex: Male

DRUGS (1)
  1. DUAC [Suspect]
     Route: 061
     Dates: start: 20111012

REACTIONS (3)
  - TOXIC SKIN ERUPTION [None]
  - BLISTER [None]
  - ERYTHEMA [None]
